FAERS Safety Report 8557643-3 (Version None)
Quarter: 2012Q3

REPORT INFORMATION
  Report Type: 
  Country: None (occurrence: None)
  Receive Date: 20120801
  Receipt Date: 20120605
  Transmission Date: 20120928
  Serious: Yes (Other)
  Sender: FDA-Public Use
  Company Number: US-ROCHE-1037944

PATIENT
  Sex: Male

DRUGS (13)
  1. AMMONIUM LACTATE [Concomitant]
     Dates: start: 20111222
  2. PSYLLIUM [Concomitant]
     Indication: CONSTIPATION
     Route: 048
     Dates: start: 20110916
  3. VEMURAFENIB [Suspect]
     Indication: THYROID CANCER
     Dates: start: 20111027
  4. LEVOTHYROXINE SODIUM [Concomitant]
     Indication: HYPOTHYROIDISM
     Route: 048
     Dates: start: 20100305
  5. METOCLOPRAMIDE [Concomitant]
     Indication: NAUSEA
     Route: 048
     Dates: start: 20111020
  6. AMMONIUM LACTATE [Concomitant]
     Dates: start: 20111117, end: 20111221
  7. AMLODIPINE [Concomitant]
     Indication: HYPERTENSION
     Route: 048
     Dates: start: 20110916, end: 20111120
  8. AMMONIUM LACTATE [Concomitant]
     Indication: DRY SKIN
     Dosage: 1 APPLICATION
     Dates: start: 20111020
  9. AMLODIPINE [Concomitant]
     Route: 048
     Dates: start: 20111121
  10. DIAZEPAM [Concomitant]
     Indication: BACK PAIN
     Route: 048
     Dates: start: 20111020
  11. AZITHROMYCIN [Concomitant]
     Indication: PYREXIA
     Dates: start: 20111128
  12. METOCLOPRAMIDE [Concomitant]
     Indication: VOMITING
     Route: 048
     Dates: start: 20120101
  13. CICLOPIROX [Concomitant]
     Indication: TINEA CRURIS
     Dosage: 1 APPLICATION
     Dates: start: 20111020

REACTIONS (2)
  - DERMAL CYST [None]
  - LIPOMA [None]
